FAERS Safety Report 11800790 (Version 6)
Quarter: 2019Q4

REPORT INFORMATION
  Report Type: Spontaneous
  Country: US (occurrence: US)
  Receive Date: 20151204
  Receipt Date: 20191002
  Transmission Date: 20200122
  Serious: Yes (Other)
  Sender: FDA-Public Use
  Company Number: US-PFIZER INC-2015406991

PATIENT
  Age: 66 Year
  Sex: Female
  Weight: 71.2 kg

DRUGS (32)
  1. HYDRODIURIL [Concomitant]
     Active Substance: HYDROCHLOROTHIAZIDE
     Dosage: 25 MG, UNK (TAKE ONE TABLET BY MOUTH ONCE DAILY)
     Route: 048
  2. PLAQUENIL [Concomitant]
     Active Substance: HYDROXYCHLOROQUINE SULFATE
     Dosage: 200 MG, 2X/DAY
     Route: 048
  3. WELLCOVORIN [Concomitant]
     Active Substance: LEUCOVORIN CALCIUM
     Dosage: 5 MG, UNK (TAKE 12 HOURS AFTER METHOTREXATE ONCE A WEEK) (AS DIRECTED)
     Route: 048
  4. VITAMIN D2 [Concomitant]
     Active Substance: ERGOCALCIFEROL
     Dosage: 50000 IU, WEEKLY (TAKE ONE CAPSULE BY MOUTH ONCE A WEEK)
     Route: 048
  5. VITAMIN D3 [Concomitant]
     Active Substance: CHOLECALCIFEROL
     Dosage: 1000 IU, DAILY
     Route: 048
  6. BENTYL [Concomitant]
     Active Substance: DICYCLOMINE HYDROCHLORIDE
     Dosage: 10 MG, 4X/DAY (1 CAPSULE BY MOUTH 4 TIMES DAILY BEFORE MEALS AND AT BEDTIME.
     Route: 048
  7. DELTASONE [Concomitant]
     Active Substance: PREDNISONE
     Dosage: 20 MG, DAILY (4 PILLS DAILY FOR 1 WEEK)
  8. LYRICA [Suspect]
     Active Substance: PREGABALIN
     Indication: RHEUMATOID ARTHRITIS
     Dosage: 100MG ONCE A DAY IN THE MORNING
     Route: 048
     Dates: start: 20151102
  9. FLEXERIL [Concomitant]
     Active Substance: CYCLOBENZAPRINE HYDROCHLORIDE
     Dosage: 5 MG, 3X/DAY (5MG TOTAL BY MOUTH 3 TIMES A DAY AS NEEDED)
     Route: 048
  10. NAPROSYN [Concomitant]
     Active Substance: NAPROXEN
     Dosage: 500 MG, 2X/DAY (TAKE 1TABLET BY MOUTH 2 TIMES A DAY WITH MEALS)
     Route: 048
  11. DELTASONE [Concomitant]
     Active Substance: PREDNISONE
     Dosage: 5 MG, DAILY (TAKE 1 TABLET (5 MG TOTAL) BY MOUTH DAILY)
     Route: 048
  12. ULTRAM [Concomitant]
     Active Substance: TRAMADOL HYDROCHLORIDE
     Indication: PAIN
     Dosage: 50 MG, UNK (TAKE 1 TABLET (50 MG TOTAL) BY MOUTH EVERY 6 HOURS AS NEEDED)
     Route: 048
  13. LYRICA [Suspect]
     Active Substance: PREGABALIN
     Indication: FIBROMYALGIA
     Dosage: 100MG CAPSULE BY MOUTH TWICE A DAY
     Route: 048
     Dates: start: 201509, end: 20151101
  14. ESTRACE [Concomitant]
     Active Substance: ESTRADIOL
     Dosage: 2 MG, UNK
     Route: 048
  15. EFFEXOR [Concomitant]
     Active Substance: VENLAFAXINE HYDROCHLORIDE
     Dosage: 2 TAB IN MORNING AND 1 AT NIGHT
  16. FOSAMAX [Concomitant]
     Active Substance: ALENDRONATE SODIUM
     Dosage: 70 MG, WEEKLY (1 TABLET (70 MG TOTAL) BY MOUTH EVERY 7 DAYS)
     Route: 048
  17. VITAMIN B12 [Concomitant]
     Active Substance: CYANOCOBALAMIN
     Dosage: 1000 UG, DAILY
     Route: 048
  18. IMITREX [Concomitant]
     Active Substance: SUMATRIPTAN SUCCINATE
     Indication: MIGRAINE
     Dosage: 50 MG, AS NEEDED (TAKE 1 TABLET BY MOUTH ONCE AS NEEDED FOR MIGRAINE FOR 1 DOSE.)
     Route: 048
  19. LYRICA [Suspect]
     Active Substance: PREGABALIN
     Dosage: 100 MG, 2X/DAY  (TAKE 1 CAPSULE (100 MG TOTAL) 2 TIMES A DAY)
     Route: 048
  20. LYRICA [Suspect]
     Active Substance: PREGABALIN
     Dosage: 100 MG, 1X/DAY
     Route: 048
  21. VOLTAREN [Concomitant]
     Active Substance: DICLOFENAC SODIUM
     Dosage: 1 G, 4X/DAY
     Route: 061
  22. FOLVITE [Concomitant]
     Active Substance: FOLIC ACID
     Dosage: 2 MG, DAILY (TAKE 1 TABLET BY MOUTH DAILY)
     Route: 048
  23. LOPRESSOR [Concomitant]
     Active Substance: METOPROLOL TARTRATE
     Dosage: 50 MG, UNK
     Route: 048
  24. DELTASONE [Concomitant]
     Active Substance: PREDNISONE
     Dosage: 15 MG, DAILY (3 PILLS DAILY FOR 1 WEEK)
  25. DELTASONE [Concomitant]
     Active Substance: PREDNISONE
     Dosage: 10 MG, DAILY (2 PILLS DAILY FOR A WEEK)
  26. TOPAMAX [Concomitant]
     Active Substance: TOPIRAMATE
     Dosage: 25 MG, 2X/DAY
     Route: 048
  27. LYRICA [Suspect]
     Active Substance: PREGABALIN
     Dosage: 100 MG, 2X/DAY (BID)
  28. TORADOL [Concomitant]
     Active Substance: KETOROLAC TROMETHAMINE
     Dosage: 10 MG, UNK
  29. PAMELOR [Concomitant]
     Active Substance: NORTRIPTYLINE HYDROCHLORIDE
     Dosage: 50 MG, UNK (TAKE 2 CAPSULES (50MG TOTAL) BY MOUTH AT BEDTIME )
     Route: 048
  30. KLOR-CON M20 [Concomitant]
     Active Substance: POTASSIUM CHLORIDE
     Dosage: 40 MEQ, DAILY (TAKE 2 TABLETS (40 MEQ TOTAL) BY MOUTH DAILY)
     Route: 048
  31. METHOTREXATE. [Concomitant]
     Active Substance: METHOTREXATE
     Indication: RHEUMATOID ARTHRITIS
     Dosage: 0.8 ML, WEEKLY
     Route: 058
  32. METHOTREXATE. [Concomitant]
     Active Substance: METHOTREXATE
     Dosage: 1 ML, WEEKLY  (INJECT 25 MG SUB Q ONCE A WEEK) (INJECT ONE ML (CC) (25 MG))
     Route: 058

REACTIONS (3)
  - Arthropathy [Unknown]
  - Rheumatoid arthritis [Unknown]
  - Intentional product misuse [Unknown]

NARRATIVE: CASE EVENT DATE: 20180121
